FAERS Safety Report 8021030-7 (Version None)
Quarter: 2011Q4

REPORT INFORMATION
  Report Type: 
  Country: None (occurrence: None)
  Receive Date: 20111228
  Receipt Date: 20111215
  Transmission Date: 20120403
  Serious: Yes (Death)
  Sender: FDA-Public Use
  Company Number: 2011P1013507

PATIENT
  Sex: Female
  Weight: 3.6 kg

DRUGS (6)
  1. IV LIPID [Concomitant]
  2. AMMONUL [Suspect]
     Dosage: IV
     Route: 042
     Dates: start: 20111101, end: 20111101
  3. SODIUM BENZOATE [Concomitant]
  4. UNSPECIFIED ANTIBIOTICS [Concomitant]
  5. L-ARGININE [Concomitant]
  6. IV CALCIUM [Concomitant]

REACTIONS (1)
  - DEATH [None]
